FAERS Safety Report 5501506-4 (Version None)
Quarter: 2007Q4

REPORT INFORMATION
  Report Type: 
  Country: None (occurrence: None)
  Receive Date: 20071026
  Receipt Date: 20071012
  Transmission Date: 20080405
  Serious: Yes (Hospitalization, Other)
  Sender: FDA-Public Use
  Company Number: 100#08#2007-04128

PATIENT
  Age: 74 Year
  Sex: Female

DRUGS (8)
  1. BACTRIM [Suspect]
     Indication: URINARY TRACT INFECTION
     Dosage: TWICE DAILY
     Route: 048
  2. CEFAZOLIN [Concomitant]
  3. WARFARIN SODIUM [Concomitant]
  4. HYDROCHLOROTHIAZIDE [Concomitant]
  5. INDOMETHACIN [Concomitant]
  6. ACETAMINOPHEN-CAFFEINE-CODEINE [Concomitant]
  7. LORAZEPAM [Concomitant]
  8. DOCUSATE SODIUM [Concomitant]

REACTIONS (18)
  - ACUTE PSYCHOSIS [None]
  - AGITATION [None]
  - AMNESIA [None]
  - ARTHRALGIA [None]
  - CONFUSIONAL STATE [None]
  - DELUSION [None]
  - DISORIENTATION [None]
  - FALL [None]
  - HAEMOGLOBIN DECREASED [None]
  - HALLUCINATION, AUDITORY [None]
  - HALLUCINATION, VISUAL [None]
  - HYPERVIGILANCE [None]
  - INSOMNIA [None]
  - LOOSE ASSOCIATIONS [None]
  - MEMORY IMPAIRMENT [None]
  - RESTLESSNESS [None]
  - TANGENTIALITY [None]
  - TREATMENT NONCOMPLIANCE [None]
